FAERS Safety Report 26080223 (Version 1)
Quarter: 2025Q4

REPORT INFORMATION
  Report Type: Spontaneous
  Country: UG (occurrence: UG)
  Receive Date: 20251124
  Receipt Date: 20251124
  Transmission Date: 20260118
  Serious: Yes (Death, Hospitalization)
  Sender: BRISTOL-MYERS SQUIBB COMPANY
  Company Number: UG-BRISTOL-MYERS SQUIBB COMPANY-2025-156773

PATIENT
  Age: 9 Year
  Sex: Male

DRUGS (1)
  1. SPRYCEL [Suspect]
     Active Substance: DASATINIB
     Indication: Acute lymphocytic leukaemia
     Dosage: 70MG (1 X 70MG TABLET)

REACTIONS (1)
  - Pleural effusion [Fatal]
